FAERS Safety Report 11698375 (Version 3)
Quarter: 2016Q1

REPORT INFORMATION
  Report Type: Spontaneous
  Country: JP (occurrence: JP)
  Receive Date: 20151104
  Receipt Date: 20160121
  Transmission Date: 20160525
  Serious: Yes (Other)
  Sender: FDA-Public Use
  Company Number: JP-ELI_LILLY_AND_COMPANY-JP201510008462

PATIENT
  Age: 85 Year
  Sex: Female
  Weight: 47 kg

DRUGS (5)
  1. MEVALOTIN [Concomitant]
     Active Substance: PRAVASTATIN SODIUM
     Dosage: 10 MG, QD
     Route: 048
  2. EVISTA [Suspect]
     Active Substance: RALOXIFENE HYDROCHLORIDE
     Indication: OSTEOPOROSIS
     Dosage: 60 MG, QD
     Route: 048
     Dates: end: 20151026
  3. ALFAROL [Concomitant]
     Active Substance: ALFACALCIDOL
     Dosage: 1 UG, QD
     Route: 048
  4. GASTER [Concomitant]
     Active Substance: FAMOTIDINE
     Dosage: 10 MG, BID
     Route: 048
  5. NITRENDIPINE [Concomitant]
     Active Substance: NITRENDIPINE
     Dosage: 5 MG, QD
     Route: 048

REACTIONS (1)
  - Paget^s disease of the vulva [Recovered/Resolved]

NARRATIVE: CASE EVENT DATE: 20150902
